FAERS Safety Report 6445127-8 (Version None)
Quarter: 2009Q4

REPORT INFORMATION
  Report Type: 
  Country: None (occurrence: None)
  Receive Date: 20091110
  Receipt Date: 20090821
  Transmission Date: 20100525
  Serious: No
  Sender: FDA-Public Use
  Company Number: 1000008377

PATIENT
  Age: 55 Year
  Sex: Female

DRUGS (7)
  1. SAVELLA [Suspect]
     Indication: FIBROMYALGIA
     Dosage: 12.5 MG (12.5 MG, 1 IN 1 D), ORAL : 25 MG (25 MG, 1 IN 1 D), ORAL ; 50 MG (50 MG, 1 IN 1 D), ORAL
     Route: 048
     Dates: start: 20090804, end: 20090810
  2. SAVELLA [Suspect]
     Indication: FIBROMYALGIA
     Dosage: 12.5 MG (12.5 MG, 1 IN 1 D), ORAL : 25 MG (25 MG, 1 IN 1 D), ORAL ; 50 MG (50 MG, 1 IN 1 D), ORAL
     Route: 048
     Dates: start: 20090811, end: 20090818
  3. SAVELLA [Suspect]
     Indication: FIBROMYALGIA
     Dosage: 12.5 MG (12.5 MG, 1 IN 1 D), ORAL : 25 MG (25 MG, 1 IN 1 D), ORAL ; 50 MG (50 MG, 1 IN 1 D), ORAL
     Route: 048
     Dates: start: 20090819
  4. MS CONTIN [Concomitant]
  5. WELLBUTRIN XL [Concomitant]
  6. BENICAR HCT [Concomitant]
  7. TRAZODONE HCL [Concomitant]

REACTIONS (1)
  - ALOPECIA [None]
